FAERS Safety Report 4871751-X (Version None)
Quarter: 2006Q1

REPORT INFORMATION
  Report Type: 
  Country: None (occurrence: None)
  Receive Date: 20060104
  Receipt Date: 20050617
  Transmission Date: 20060701
  Serious: No
  Sender: FDA-Public Use
  Company Number: US-BRISTOL-MYERS SQUIBB COMPANY-13008883

PATIENT
  Sex: Female

DRUGS (1)
  1. DESYREL [Suspect]
     Indication: INSOMNIA

REACTIONS (1)
  - ARRHYTHMIA [None]
